FAERS Safety Report 4280510-0 (Version None)
Quarter: 2004Q1

REPORT INFORMATION
  Report Type: 
  Country: None (occurrence: None)
  Receive Date: 20040127
  Receipt Date: 20040114
  Transmission Date: 20041129
  Serious: Yes (Other)
  Sender: FDA-Public Use
  Company Number: 200401007

PATIENT
  Sex: Female

DRUGS (2)
  1. IMODIUM [Suspect]
     Indication: DIARRHOEA
     Dosage: PO
     Route: 048
  2. IMODIUM [Suspect]
     Indication: FLATULENCE
     Dosage: PO
     Route: 048

REACTIONS (1)
  - TOXIC DILATATION OF COLON [None]
